FAERS Safety Report 7726535-1 (Version None)
Quarter: 2011Q3

REPORT INFORMATION
  Report Type: 
  Country: None (occurrence: None)
  Receive Date: 20110902
  Receipt Date: 20110823
  Transmission Date: 20111222
  Serious: Yes (Other)
  Sender: FDA-Public Use
  Company Number: PHHY2011JP76645

PATIENT
  Sex: Female

DRUGS (1)
  1. LAMISIL [Suspect]
     Dosage: UNK
     Route: 048

REACTIONS (6)
  - HYPOAESTHESIA [None]
  - GASTROINTESTINAL MOTILITY DISORDER [None]
  - PAIN IN EXTREMITY [None]
  - PYREXIA [None]
  - GAIT DISTURBANCE [None]
  - ABDOMINAL PAIN [None]
